FAERS Safety Report 16712284 (Version 1)
Quarter: 2019Q3

REPORT INFORMATION
  Report Type: Spontaneous
  Country: US (occurrence: US)
  Receive Date: 20190816
  Receipt Date: 20190816
  Transmission Date: 20191004
  Serious: Yes (Other)
  Sender: FDA-Public Use
  Company Number: US-SA-2019SA226612

PATIENT
  Age: 51 Year
  Sex: Male
  Weight: 63 kg

DRUGS (19)
  1. ALBUTEROL HFA [Concomitant]
     Active Substance: ALBUTEROL SULFATE
     Indication: WHEEZING
  2. VITAMIN D [ERGOCALCIFEROL] [Concomitant]
     Active Substance: ERGOCALCIFEROL
     Dosage: 1 CAP; QD
     Route: 048
     Dates: start: 20150402
  3. PROGRAF [Concomitant]
     Active Substance: TACROLIMUS\TACROLIMUS ANHYDROUS
     Dosage: 2 MG, EVERY MORNING
     Route: 048
     Dates: start: 20190725
  4. PREDNISONE. [Concomitant]
     Active Substance: PREDNISONE
     Dosage: 5 MG, QD
     Route: 048
     Dates: start: 20110921
  5. FAMOTIDINE. [Concomitant]
     Active Substance: FAMOTIDINE
     Dosage: 20 MG, QD
     Route: 048
     Dates: start: 20190530
  6. ALBUTEROL HFA [Concomitant]
     Active Substance: ALBUTEROL SULFATE
     Indication: DYSPNOEA
     Dosage: 2PUFFS; AS NEEDED
     Route: 048
     Dates: start: 20160112
  7. CRESTOR [Concomitant]
     Active Substance: ROSUVASTATIN CALCIUM
     Dosage: 5 MG, QD
     Route: 048
     Dates: start: 20190321
  8. IMITREX [Concomitant]
     Active Substance: SUMATRIPTAN SUCCINATE
     Indication: MIGRAINE
     Dosage: 1 TABLET; AS NEEDED
     Route: 048
     Dates: start: 20160112
  9. ASPIRIN [ACETYLSALICYLIC ACID] [Concomitant]
     Active Substance: ASPIRIN
     Dosage: 81 MG, QD
     Route: 048
     Dates: start: 20110921
  10. PROGRAF [Concomitant]
     Active Substance: TACROLIMUS\TACROLIMUS ANHYDROUS
     Dosage: 1 MG, UNK
     Route: 048
     Dates: start: 20190725
  11. MESALAMINE. [Concomitant]
     Active Substance: MESALAMINE
     Dosage: 2 TABLET, QD
     Route: 048
     Dates: start: 20190115
  12. AMOXICILLIN. [Concomitant]
     Active Substance: AMOXICILLIN
     Indication: DENTAL DISCOMFORT
     Dosage: 2000 MG, PRN
     Route: 048
     Dates: start: 20170420
  13. POTASSIUM [Concomitant]
     Active Substance: POTASSIUM
     Dosage: 1 TAB, TID
     Route: 048
     Dates: start: 20190603
  14. TYLENOL [Concomitant]
     Active Substance: ACETAMINOPHEN
     Dosage: 2 TAB; EVERY 2 WEEKS
     Route: 048
     Dates: start: 20110510
  15. IMITREX [Concomitant]
     Active Substance: SUMATRIPTAN SUCCINATE
     Indication: HEADACHE
  16. METOPROLOL. [Concomitant]
     Active Substance: METOPROLOL
     Dosage: 1 TAB; , TID
     Route: 048
     Dates: start: 20160324
  17. FABRAZYME [Suspect]
     Active Substance: AGALSIDASE BETA
     Indication: MUCOPOLYSACCHARIDOSIS
     Dosage: 80 MG, QOW
     Route: 042
     Dates: start: 20110922
  18. FAMOTIDINE. [Concomitant]
     Active Substance: FAMOTIDINE
     Dosage: 40 MG, QD
     Route: 048
     Dates: start: 20190518
  19. SYMBICORT [Concomitant]
     Active Substance: BUDESONIDE\FORMOTEROL FUMARATE DIHYDRATE
     Dosage: 2 PUFFS, TID
     Route: 055
     Dates: start: 20190221

REACTIONS (2)
  - Lung infection [Unknown]
  - Product use in unapproved indication [Unknown]
